FAERS Safety Report 11455789 (Version 1)
Quarter: 2015Q3

REPORT INFORMATION
  Report Type: Spontaneous
  Country: US (occurrence: US)
  Receive Date: 20150831
  Receipt Date: 20150831
  Transmission Date: 20151125
  Serious: Yes (Hospitalization, Other)
  Sender: FDA-Public Use
  Company Number: US-GLAXOSMITHKLINE INC.-US2015GSK123850

PATIENT
  Sex: Female
  Weight: 63.5 kg

DRUGS (18)
  1. MOBIC [Concomitant]
     Active Substance: MELOXICAM
  2. LACTULOSE. [Concomitant]
     Active Substance: LACTULOSE
  3. TIZANIDINE. [Concomitant]
     Active Substance: TIZANIDINE
  4. BACTRIM DS [Concomitant]
     Active Substance: SULFAMETHOXAZOLE\TRIMETHOPRIM
  5. OXYCODONE [Concomitant]
     Active Substance: OXYCODONE
  6. DICLOFENAC [Concomitant]
     Active Substance: DICLOFENAC
  7. AZITHROMYCIN [Concomitant]
     Active Substance: AZITHROMYCIN ANHYDROUS
  8. PRILOSEC [Concomitant]
     Active Substance: OMEPRAZOLE MAGNESIUM
  9. TRAMADOL. [Concomitant]
     Active Substance: TRAMADOL
  10. PROZAC [Concomitant]
     Active Substance: FLUOXETINE HYDROCHLORIDE
  11. ZOLPIDEM [Concomitant]
     Active Substance: ZOLPIDEM\ZOLPIDEM TARTRATE
  12. ATORVASTATIN [Concomitant]
     Active Substance: ATORVASTATIN
  13. ZOFRAN [Concomitant]
     Active Substance: ONDANSETRON HYDROCHLORIDE
  14. FENTANYL. [Concomitant]
     Active Substance: FENTANYL
  15. NEXIUM [Concomitant]
     Active Substance: ESOMEPRAZOLE MAGNESIUM
  16. COLACE [Concomitant]
     Active Substance: DOCUSATE SODIUM
  17. VOTRIENT [Suspect]
     Active Substance: PAZOPANIB HYDROCHLORIDE
     Indication: RENAL CANCER
     Dosage: 800 MG, QD
     Route: 048
     Dates: start: 20150807
  18. VITAMIN B12 [Concomitant]
     Active Substance: CYANOCOBALAMIN

REACTIONS (1)
  - Hospitalisation [Unknown]
